FAERS Safety Report 25104544 (Version 1)
Quarter: 2025Q1

REPORT INFORMATION
  Report Type: Spontaneous
  Country: JP (occurrence: JP)
  Receive Date: 20250321
  Receipt Date: 20250321
  Transmission Date: 20250409
  Serious: Yes (Hospitalization, Other)
  Sender: EXELIXIS
  Company Number: JP-BRISTOL-MYERS SQUIBB COMPANY-BMS-2021-123857

PATIENT
  Age: 59 Year
  Sex: Male
  Weight: 52.1 kg

DRUGS (19)
  1. CABOMETYX [Suspect]
     Active Substance: CABOZANTINIB S-MALATE
     Indication: Metastatic renal cell carcinoma
     Route: 048
     Dates: start: 20210126
  2. CABOMETYX [Suspect]
     Active Substance: CABOZANTINIB S-MALATE
     Dosage: 20 MG, EVERYDAY
     Route: 048
     Dates: start: 20210316
  3. CABOMETYX [Suspect]
     Active Substance: CABOZANTINIB S-MALATE
     Route: 048
     Dates: start: 20220104
  4. CABOMETYX [Suspect]
     Active Substance: CABOZANTINIB S-MALATE
     Route: 048
  5. CABOMETYX [Suspect]
     Active Substance: CABOZANTINIB S-MALATE
     Route: 048
  6. OPDIVO [Suspect]
     Active Substance: NIVOLUMAB
     Indication: Metastatic renal cell carcinoma
     Route: 041
     Dates: start: 20200204, end: 20210201
  7. OPDIVO [Suspect]
     Active Substance: NIVOLUMAB
     Route: 041
     Dates: start: 20201201, end: 202101
  8. YERVOY [Suspect]
     Active Substance: IPILIMUMAB
     Indication: Metastatic renal cell carcinoma
     Route: 041
     Dates: start: 20200204, end: 20200427
  9. TENELIGLIPTIN [Concomitant]
     Active Substance: TENELIGLIPTIN
     Indication: Product used for unknown indication
     Dosage: 20 MG, EVERYDAY, AFTER BREAKFAST
     Route: 048
  10. TENELIGLIPTIN [Concomitant]
     Active Substance: TENELIGLIPTIN
     Dosage: 20 MG, EVERYDAY, AFTER BREAKFAST
     Route: 048
  11. Heparinoid [Concomitant]
     Indication: Product used for unknown indication
     Route: 062
  12. Heparinoid [Concomitant]
     Route: 062
  13. EDOXABAN TOSYLATE [Concomitant]
     Active Substance: EDOXABAN TOSYLATE
     Indication: Product used for unknown indication
     Dosage: 30 MG, EVERYDAY, AFTER BREAKFAST
     Route: 048
     Dates: start: 20210105
  14. LEVOTHYROXINE SODIUM [Concomitant]
     Active Substance: LEVOTHYROXINE SODIUM
     Indication: Product used for unknown indication
     Dosage: 25 UG, EVERYDAY, AFTER BREAKFAST
     Route: 048
  15. LEVOTHYROXINE SODIUM [Concomitant]
     Active Substance: LEVOTHYROXINE SODIUM
     Dosage: 12.5, EVERYDAY, AFTER BREAKFAST
     Route: 048
  16. LEVOTHYROXINE SODIUM [Concomitant]
     Active Substance: LEVOTHYROXINE SODIUM
     Dosage: 18.75 UG, EVERYDAY, AFTER BREAKFAST
     Route: 065
     Dates: start: 20210710
  17. CORTRIL [Concomitant]
     Active Substance: HYDROCORTISONE
     Indication: Product used for unknown indication
     Dosage: 15MG-0.5MG, Q12H, AFTER BREAKFAST AND DINNER
     Route: 048
  18. CORTRIL [Concomitant]
     Active Substance: HYDROCORTISONE
     Dosage: 0.5 MG, QD
     Route: 048
  19. AMLODIPINE [Concomitant]
     Active Substance: AMLODIPINE BESYLATE
     Indication: Product used for unknown indication
     Dosage: 5 MG, EVERYDAY, AFTER BREAKFAST
     Route: 048

REACTIONS (4)
  - Primary adrenal insufficiency [Not Recovered/Not Resolved]
  - Liver disorder [Unknown]
  - Palmar-plantar erythrodysaesthesia syndrome [Unknown]
  - Malaise [Unknown]

NARRATIVE: CASE EVENT DATE: 20200301
